FAERS Safety Report 6834953-9 (Version None)
Quarter: 2010Q3

REPORT INFORMATION
  Report Type: 
  Country: None (occurrence: None)
  Receive Date: 20100712
  Receipt Date: 20070605
  Transmission Date: 20110219
  Serious: No
  Sender: FDA-Public Use
  Company Number: US-PFIZER INC-2007022747

PATIENT
  Sex: Female
  Weight: 58.97 kg

DRUGS (3)
  1. CHANTIX [Suspect]
     Indication: SMOKING CESSATION THERAPY
     Dates: start: 20070301
  2. NORVASC [Concomitant]
  3. TOPROL-XL [Concomitant]

REACTIONS (3)
  - ABNORMAL DREAMS [None]
  - ABNORMAL FAECES [None]
  - CONSTIPATION [None]
